FAERS Safety Report 9053272 (Version 2)
Quarter: 2013Q3

REPORT INFORMATION
  Report Type: Spontaneous
  Country: US (occurrence: US)
  Receive Date: 20130207
  Receipt Date: 20130913
  Transmission Date: 20140515
  Serious: Yes (Hospitalization, Other)
  Sender: FDA-Public Use
  Company Number: US-009507513-1302USA002873

PATIENT
  Sex: Female
  Weight: 110.66 kg

DRUGS (1)
  1. NUVARING [Suspect]
     Indication: CONTRACEPTION
     Dosage: UNK
     Route: 067
     Dates: start: 200609, end: 200803

REACTIONS (7)
  - Abortion spontaneous [Unknown]
  - Pulmonary embolism [Unknown]
  - Abscess [Unknown]
  - Hyperglycaemia [Unknown]
  - Maternal exposure before pregnancy [Unknown]
  - Headache [Unknown]
  - Nausea [Unknown]
